FAERS Safety Report 7524541-3 (Version None)
Quarter: 2011Q2

REPORT INFORMATION
  Report Type: 
  Country: None (occurrence: None)
  Receive Date: 20110606
  Receipt Date: 20110509
  Transmission Date: 20111010
  Serious: Yes (Hospitalization)
  Sender: FDA-Public Use
  Company Number: US-BAYER-201041460NA

PATIENT
  Age: 27 Year
  Sex: Female
  Weight: 82.54 kg

DRUGS (3)
  1. YAZ [Suspect]
     Dosage: UNK
  2. AMOXICILLIN [Concomitant]
  3. YASMIN [Suspect]
     Indication: ACNE

REACTIONS (2)
  - PULMONARY EMBOLISM [None]
  - DEEP VEIN THROMBOSIS [None]
